FAERS Safety Report 8761048 (Version 2)
Quarter: 2012Q4

REPORT INFORMATION
  Report Type: 
  Country: BR (occurrence: BR)
  Receive Date: 20120830
  Receipt Date: 20121016
  Transmission Date: 20130627
  Serious: Yes (Other)
  Sender: FDA-Public Use
  Company Number: BR-NOVOPROD-358708

PATIENT
  Age: 58 Year
  Sex: Female
  Weight: 70 kg

DRUGS (6)
  1. VICTOZA [Suspect]
     Indication: TYPE 2 DIABETES MELLITUS
     Dosage: UNK
     Route: 065
     Dates: end: 201209
  2. GLIFAGE [Concomitant]
     Indication: TYPE 2 DIABETES MELLITUS
     Dosage: 500 mg, single
     Route: 048
     Dates: end: 201209
  3. ALDACTONE                          /00006201/ [Concomitant]
     Dosage: 25 mg, single
     Route: 048
  4. CARVEDILOL [Concomitant]
     Dosage: 25 mg, single
     Route: 048
  5. ARADOIS [Concomitant]
     Dosage: 25 mg, bid
     Route: 048
  6. PANTOPRAZOLE [Concomitant]
     Dosage: 20 mg, single
     Route: 048

REACTIONS (1)
  - Thyroid cyst [Recovered/Resolved]
